FAERS Safety Report 25247149 (Version 1)
Quarter: 2025Q2

REPORT INFORMATION
  Report Type: Spontaneous
  Country: US (occurrence: US)
  Receive Date: 20250428
  Receipt Date: 20250428
  Transmission Date: 20250716
  Serious: No
  Sender: TRAVERE THERAPEUTICS
  Company Number: US-TRAVERE-2025TVT00354

PATIENT
  Age: 65 Year
  Sex: Male

DRUGS (1)
  1. FILSPARI [Suspect]
     Active Substance: SPARSENTAN
     Indication: IgA nephropathy
     Route: 048
     Dates: start: 20250314

REACTIONS (10)
  - Dizziness [Recovering/Resolving]
  - Influenza like illness [Unknown]
  - Euphoric mood [Unknown]
  - Vertigo [Unknown]
  - Agitation [Unknown]
  - Anger [Unknown]
  - Nasal congestion [Unknown]
  - Headache [None]
  - Pruritus [Unknown]
  - Pulmonary congestion [Unknown]
